FAERS Safety Report 8121306-9 (Version None)
Quarter: 2012Q1

REPORT INFORMATION
  Report Type: 
  Country: None (occurrence: None)
  Receive Date: 20120208
  Receipt Date: 20120127
  Transmission Date: 20120608
  Serious: Yes (Hospitalization)
  Sender: FDA-Public Use
  Company Number: US-BAYER-2011-037993

PATIENT
  Age: 45 Year
  Sex: Female
  Weight: 92.971 kg

DRUGS (3)
  1. ASCORBIC ACID [Concomitant]
     Indication: SEASONAL ALLERGY
  2. EFFEXOR [Concomitant]
     Indication: DEPRESSION
     Dosage: UNK
     Route: 048
     Dates: start: 20080710, end: 20100413
  3. YAZ [Suspect]
     Indication: PREMENSTRUAL SYNDROME
     Dosage: UNK
     Dates: start: 20081023, end: 20090316

REACTIONS (9)
  - DYSPNOEA [None]
  - EMOTIONAL DISTRESS [None]
  - CHEST PAIN [None]
  - COUGH [None]
  - ANXIETY [None]
  - GENERAL PHYSICAL HEALTH DETERIORATION [None]
  - PAIN [None]
  - FEAR [None]
  - PULMONARY EMBOLISM [None]
